FAERS Safety Report 8410173-1 (Version None)
Quarter: 2012Q2

REPORT INFORMATION
  Report Type: 
  Country: None (occurrence: None)
  Receive Date: 20120605
  Receipt Date: 20120529
  Transmission Date: 20120825
  Serious: Yes (Hospitalization, Other)
  Sender: FDA-Public Use
  Company Number: PHHY2012VE047011

PATIENT

DRUGS (5)
  1. ZOLEDRONOC ACID [Suspect]
     Indication: OSTEOPOROSIS
     Dosage: 5 MG, ONCE IN A YEAR
     Route: 042
     Dates: start: 20110512
  2. PIRACETAM [Concomitant]
     Dosage: 800 MG, QD
     Route: 048
     Dates: start: 20120201
  3. LOSARTAN POTASSIUM AND HYDROCHLOROTHIAZIDE [Concomitant]
     Indication: HYPERTENSION
     Dosage: 1 DF, QD
     Route: 048
     Dates: start: 20060101
  4. EUTHYROX [Concomitant]
     Indication: HYPOTHYROIDISM
     Dosage: 100 UG, QD
     Dates: start: 20050101
  5. ZOLEDRONOC ACID [Suspect]
     Dosage: 5 MG, ONCE IN A YEAR
     Route: 042
     Dates: start: 20120306

REACTIONS (13)
  - PLATELET COUNT DECREASED [None]
  - GAIT DISTURBANCE [None]
  - HYPOTHERMIA [None]
  - HYPOTENSION [None]
  - CHEST PAIN [None]
  - TREMOR [None]
  - INAPPROPRIATE SCHEDULE OF DRUG ADMINISTRATION [None]
  - ARTERIOSPASM CORONARY [None]
  - PAIN IN EXTREMITY [None]
  - ARTHRALGIA [None]
  - HAEMOGLOBIN DECREASED [None]
  - HAEMATOCHEZIA [None]
  - INFLAMMATION [None]
